FAERS Safety Report 15388703 (Version 1)
Quarter: 2018Q3

REPORT INFORMATION
  Report Type: Spontaneous
  Country: US (occurrence: US)
  Receive Date: 20180907
  Receipt Date: 20180907
  Transmission Date: 20181010
  Serious: Yes (Hospitalization)
  Sender: FDA-Public Use
  Company Number: None

PATIENT
  Age: 75 Year
  Sex: Female
  Weight: 99.2 kg

DRUGS (2)
  1. CISPLATIN. [Suspect]
     Active Substance: CISPLATIN
     Dates: end: 20180806
  2. GEMCITABINE HYDROCHLORIDE. [Suspect]
     Active Substance: GEMCITABINE HYDROCHLORIDE
     Dates: end: 20180806

REACTIONS (6)
  - Dehydration [None]
  - Deep vein thrombosis [None]
  - Acute kidney injury [None]
  - Radiation skin injury [None]
  - Pulmonary embolism [None]
  - Laboratory test interference [None]

NARRATIVE: CASE EVENT DATE: 20180820
